FAERS Safety Report 7726044-X (Version None)
Quarter: 2011Q3

REPORT INFORMATION
  Report Type: 
  Country: None (occurrence: None)
  Receive Date: 20110902
  Receipt Date: 20110827
  Transmission Date: 20111222
  Serious: Yes (Death, Other)
  Sender: FDA-Public Use
  Company Number: IR-ROCHE-799180

PATIENT
  Age: 45 Year
  Sex: Female
  Weight: 56 kg

DRUGS (4)
  1. XELODA [Concomitant]
     Dates: start: 20100101, end: 20101201
  2. BEVACIZUMAB [Suspect]
     Dosage: FREQUENCY: EVERY 2 WEEK
     Route: 042
     Dates: start: 20090501, end: 20110201
  3. ZOMETA [Concomitant]
     Dates: start: 20090501, end: 20100501
  4. PACLITAXEL [Concomitant]
     Dates: start: 20090501, end: 20091101

REACTIONS (2)
  - HYPERTENSION [None]
  - BLOOD CREATININE INCREASED [None]
